FAERS Safety Report 8524305-8 (Version None)
Quarter: 2012Q3

REPORT INFORMATION
  Report Type: 
  Country: None (occurrence: None)
  Receive Date: 20120720
  Receipt Date: 20120713
  Transmission Date: 20120928
  Serious: Yes (Hospitalization)
  Sender: FDA-Public Use
  Company Number: DE-ABBOTT-12P-062-0908342-00

PATIENT
  Sex: Male
  Weight: 98.5 kg

DRUGS (20)
  1. DICLOFENAC [Concomitant]
     Indication: INTERVERTEBRAL DISCITIS
     Dosage: 75-150MG
     Route: 048
  2. CONCOR [Concomitant]
     Indication: HYPERTENSION
  3. PANTOPRAZOLE [Concomitant]
     Indication: GASTRITIS
     Route: 048
  4. ABSTRAL [Concomitant]
     Indication: INTERVERTEBRAL DISCITIS
     Route: 048
  5. DURAGESIC-100 [Concomitant]
     Indication: INTERVERTEBRAL DISCITIS
  6. FERRLECIT [Concomitant]
     Indication: ANAEMIA
     Dosage: ON MONDAY, WEDNESDAY AND FRIDAY
  7. CLINDAMYCIN [Concomitant]
     Indication: PRODUCT USED FOR UNKNOWN INDICATION
     Route: 048
  8. AQUAPHOR [Concomitant]
     Indication: RENAL FAILURE
  9. DEKRISTOL [Concomitant]
     Indication: RENAL FAILURE
     Dosage: ON WEDNESDAY
     Route: 048
  10. LERCANIDIPINE [Concomitant]
     Indication: HYPERTENSION
     Route: 048
  11. CEFAZOLIN [Concomitant]
     Indication: PRODUCT USED FOR UNKNOWN INDICATION
  12. BUPRENORPHINE [Suspect]
     Indication: BACK PAIN
     Dosage: 52 MCG PER HOUR
     Dates: start: 20111223
  13. CARENAL [Concomitant]
     Indication: RENAL FAILURE
     Route: 048
  14. DURAGESIC-100 [Concomitant]
     Dosage: 25 UG/HOUR
  15. TORSEMIDE [Concomitant]
     Indication: RENAL FAILURE
     Route: 048
  16. METOCLOPRAMIDE [Concomitant]
     Indication: NAUSEA
     Dosage: WITH DUROGESIC
  17. VERGENTAN [Concomitant]
     Indication: NAUSEA
  18. ZEMPLAR [Suspect]
     Indication: MESANGIOPROLIFERATIVE GLOMERULONEPHRITIS
     Dosage: 5MCG ON MONDAY AND FRIDAY AFTER DIALYSIS
     Route: 042
     Dates: start: 20111202, end: 20120123
  19. INSUMAN [Concomitant]
     Indication: DIABETES MELLITUS
     Dosage: 4-5 X 10-18 IU
  20. ALLOPURINOL [Concomitant]
     Indication: HYPERURICAEMIA

REACTIONS (5)
  - NAUSEA [None]
  - VOMITING [None]
  - WEIGHT DECREASED [None]
  - HYPERTENSION [None]
  - INTERVERTEBRAL DISCITIS [None]
